FAERS Safety Report 5166599-5 (Version None)
Quarter: 2006Q4

REPORT INFORMATION
  Report Type: 
  Country: None (occurrence: None)
  Receive Date: 20061207
  Receipt Date: 20061129
  Transmission Date: 20070319
  Serious: Yes (Death)
  Sender: FDA-Public Use
  Company Number: PHHO2006DK20364

PATIENT
  Age: 72 Year
  Sex: Male
  Weight: 86 kg

DRUGS (1)
  1. ZOLEDRONATE [Suspect]
     Route: 042
     Dates: start: 20060203

REACTIONS (1)
  - DEATH [None]
